FAERS Safety Report 4847904-3 (Version None)
Quarter: 2005Q4

REPORT INFORMATION
  Report Type: 
  Country: None (occurrence: None)
  Receive Date: 20051206
  Receipt Date: 20051206
  Transmission Date: 20060501
  Serious: Yes (Hospitalization)
  Sender: FDA-Public Use
  Company Number: None

PATIENT
  Age: 82 Year
  Sex: Male
  Weight: 77.1115 kg

DRUGS (2)
  1. GATIFLOXACIN [Suspect]
     Indication: PLEURAL EFFUSION
     Dosage: 400MG  DAILY  PO
     Route: 048
     Dates: start: 20051122, end: 20051201
  2. GATIFLOXACIN [Suspect]
     Indication: PLEURAL INFECTION
     Dosage: 400MG  DAILY  PO
     Route: 048
     Dates: start: 20051122, end: 20051201

REACTIONS (1)
  - DIARRHOEA [None]
